FAERS Safety Report 11175049 (Version 1)
Quarter: 2015Q2

REPORT INFORMATION
  Report Type: Spontaneous
  Country: US (occurrence: None)
  Receive Date: 20150515
  Receipt Date: 20150515
  Transmission Date: 20150821
  Serious: Yes (Hospitalization, Other)
  Sender: FDA-Public Use
  Company Number: 2014000669

PATIENT
  Age: 52 Year
  Sex: Female

DRUGS (1)
  1. CIMZIA [Suspect]
     Active Substance: CERTOLIZUMAB PEGOL
     Indication: CROHN^S DISEASE
     Route: 058
     Dates: start: 20110930, end: 2014

REACTIONS (11)
  - Crohn^s disease [None]
  - Vomiting [None]
  - Nausea [None]
  - Diarrhoea [None]
  - Malaise [None]
  - Retching [None]
  - Pneumonia [None]
  - Asthenia [None]
  - Gastric disorder [None]
  - Body temperature [None]
  - Dehydration [None]

NARRATIVE: CASE EVENT DATE: 20140526
